FAERS Safety Report 25867811 (Version 5)
Quarter: 2025Q4

REPORT INFORMATION
  Report Type: Spontaneous
  Country: US (occurrence: US)
  Receive Date: 20251001
  Receipt Date: 20251218
  Transmission Date: 20260118
  Serious: Yes (Other)
  Sender: SYNDAX
  Company Number: US-SYNDAX PHARMACEUTICALS, INC.-2025US000766

PATIENT
  Sex: Male
  Weight: 69.088 kg

DRUGS (1)
  1. REVUFORJ [Suspect]
     Active Substance: REVUMENIB CITRATE
     Indication: Product used for unknown indication
     Dosage: 160 MILLIGRAM, BID
     Route: 048

REACTIONS (10)
  - Full blood count decreased [Unknown]
  - White blood cell count decreased [Unknown]
  - Red blood cell count decreased [Unknown]
  - Neuropathy peripheral [Unknown]
  - Haemoglobin abnormal [Unknown]
  - Haemoglobin decreased [Recovering/Resolving]
  - Full blood count abnormal [Unknown]
  - Pruritus [Unknown]
  - Laboratory test abnormal [Unknown]
  - Constipation [Unknown]
